FAERS Safety Report 9632937 (Version 1)
Quarter: 2013Q4

REPORT INFORMATION
  Report Type: Spontaneous
  Country: IN (occurrence: IN)
  Receive Date: 20131018
  Receipt Date: 20131018
  Transmission Date: 20140711
  Serious: Yes (Hospitalization, Other)
  Sender: FDA-Public Use
  Company Number: PHHY2013IN113827

PATIENT
  Sex: Female
  Weight: .96 kg

DRUGS (2)
  1. METOPROLOL [Suspect]
     Route: 064
  2. NITROGLYCERIN SANDOZ [Suspect]
     Route: 064

REACTIONS (4)
  - Low birth weight baby [Unknown]
  - Apgar score low [Unknown]
  - Premature baby [Unknown]
  - Foetal exposure during pregnancy [Unknown]
